FAERS Safety Report 9551886 (Version 1)
Quarter: 2013Q3

REPORT INFORMATION
  Report Type: Spontaneous
  Country: FR (occurrence: FR)
  Receive Date: 20130925
  Receipt Date: 20130925
  Transmission Date: 20140515
  Serious: Yes (Other)
  Sender: FDA-Public Use
  Company Number: FR-JNJFOC-20130910435

PATIENT
  Sex: Female

DRUGS (1)
  1. XEPLION [Suspect]
     Indication: ACCIDENTAL EXPOSURE TO PRODUCT
     Route: 030

REACTIONS (2)
  - Exposure to contaminated device [Unknown]
  - Injury associated with device [Unknown]
